FAERS Safety Report 9769050 (Version 2)
Quarter: 2014Q1

REPORT INFORMATION
  Report Type: Spontaneous
  Country: US (occurrence: US)
  Receive Date: 20131218
  Receipt Date: 20140218
  Transmission Date: 20141002
  Serious: Yes (Hospitalization)
  Sender: FDA-Public Use
  Company Number: US-JNJFOC-20131206456

PATIENT
  Age: 74 Year
  Sex: Female

DRUGS (13)
  1. XARELTO [Suspect]
     Indication: PROPHYLAXIS
     Dosage: DAILY
     Route: 048
     Dates: start: 20131130
  2. XARELTO [Suspect]
     Indication: THROMBOSIS PROPHYLAXIS
     Dosage: DAILY
     Route: 048
     Dates: start: 20131130
  3. XARELTO [Suspect]
     Indication: KNEE ARTHROPLASTY
     Dosage: DAILY
     Route: 048
     Dates: start: 20131130
  4. NORVASC [Concomitant]
     Indication: HYPERTENSION
     Route: 065
  5. LOTENSIN [Concomitant]
     Indication: HYPERTENSION
     Route: 065
  6. BUSPAR [Concomitant]
     Indication: ANXIETY
     Route: 065
  7. COREG [Concomitant]
     Route: 065
  8. PROZAC [Concomitant]
     Indication: DIABETIC NEUROPATHY
     Route: 065
  9. PROZAC [Concomitant]
     Indication: ANXIETY
     Route: 065
  10. SYNTHROID [Concomitant]
     Indication: HYPOTHYROIDISM
     Route: 065
  11. PRILOSEC [Concomitant]
     Indication: GASTROOESOPHAGEAL REFLUX DISEASE
     Route: 065
  12. ZOCOR [Concomitant]
     Route: 065
  13. DYAZIDE [Concomitant]
     Dosage: DOSE: 37.5/25
     Route: 065

REACTIONS (1)
  - Pulmonary embolism [Recovered/Resolved]
